FAERS Safety Report 5472775-4 (Version None)
Quarter: 2007Q4

REPORT INFORMATION
  Report Type: 
  Country: None (occurrence: None)
  Receive Date: 20071001
  Receipt Date: 20061103
  Transmission Date: 20080405
  Serious: No
  Sender: FDA-Public Use
  Company Number: US-ASTRAZENECA-2006UW21665

PATIENT
  Age: 59 Year
  Sex: Female

DRUGS (3)
  1. ARIMIDEX [Suspect]
     Indication: BREAST CANCER RECURRENT
     Route: 048
     Dates: start: 20030101
  2. ASPIRIN [Concomitant]
  3. VITAMINS [Concomitant]

REACTIONS (5)
  - DEPRESSION [None]
  - DYSPHONIA [None]
  - MUSCULOSKELETAL PAIN [None]
  - PHARYNGITIS [None]
  - VERTIGO [None]
